FAERS Safety Report 11193571 (Version 1)
Quarter: 2015Q2

REPORT INFORMATION
  Report Type: Spontaneous
  Country: FR (occurrence: FR)
  Receive Date: 20150616
  Receipt Date: 20150616
  Transmission Date: 20150821
  Serious: Yes (Life-Threatening, Hospitalization, Other)
  Sender: FDA-Public Use
  Company Number: FR-ELI_LILLY_AND_COMPANY-FR201506002912

PATIENT
  Age: 78 Year
  Sex: Male

DRUGS (9)
  1. LANTUS [Concomitant]
     Active Substance: INSULIN GLARGINE
     Dosage: 10 IU, UNK
     Route: 065
  2. EPO                                /00909301/ [Concomitant]
     Active Substance: ERYTHROPOIETIN
     Dosage: UNK, UNKNOWN
     Route: 065
  3. NEULASTA [Concomitant]
     Active Substance: PEGFILGRASTIM
     Dosage: UNK, UNKNOWN
     Route: 065
  4. ALIMTA [Suspect]
     Active Substance: PEMETREXED DISODIUM
     Indication: BRONCHIAL CARCINOMA
     Dosage: UNK, UNKNOWN
     Route: 042
     Dates: start: 20150330, end: 20150512
  5. NOVORAPID [Concomitant]
     Active Substance: INSULIN ASPART
     Dosage: UNK, UNKNOWN
     Route: 065
  6. CISPLATINE [Suspect]
     Active Substance: CISPLATIN
     Indication: BRONCHIAL CARCINOMA
     Dosage: UNK, UNKNOWN
     Route: 042
     Dates: start: 20150330, end: 20150512
  7. COVERAM [Concomitant]
     Active Substance: AMLODIPINE\PERINDOPRIL
     Route: 065
  8. PLAVIX [Concomitant]
     Active Substance: CLOPIDOGREL BISULFATE
     Dosage: 75 MG, UNKNOWN
     Route: 065
  9. CRESTOR [Concomitant]
     Active Substance: ROSUVASTATIN CALCIUM
     Dosage: 20 MG, UNK
     Route: 065

REACTIONS (8)
  - Acute kidney injury [Not Recovered/Not Resolved]
  - Hypokalaemia [Unknown]
  - Atrial fibrillation [Unknown]
  - Meningioma [Unknown]
  - Brain mass [Unknown]
  - Generalised tonic-clonic seizure [Unknown]
  - Anaemia [Unknown]
  - Hypocalcaemia [Recovering/Resolving]

NARRATIVE: CASE EVENT DATE: 20150519
